FAERS Safety Report 15390108 (Version 5)
Quarter: 2019Q3

REPORT INFORMATION
  Report Type: Report from Study
  Country: None (occurrence: US)
  Receive Date: 20180917
  Receipt Date: 20190815
  Transmission Date: 20191004
  Serious: Yes (Hospitalization, Other)
  Sender: FDA-Public Use
  Company Number: CA-ABBVIE-18K-028-2485101-00

PATIENT
  Age: 74 Year
  Sex: Female

DRUGS (1)
  1. HUMIRA [Suspect]
     Active Substance: ADALIMUMAB
     Indication: RHEUMATOID ARTHRITIS
     Route: 058
     Dates: start: 20180601

REACTIONS (6)
  - Finger deformity [Unknown]
  - Back pain [Not Recovered/Not Resolved]
  - Rheumatoid arthritis [Not Recovered/Not Resolved]
  - Contusion [Not Recovered/Not Resolved]
  - Hand deformity [Unknown]
  - Fall [Recovered/Resolved]

NARRATIVE: CASE EVENT DATE: 201809
